FAERS Safety Report 14393744 (Version 1)
Quarter: 2018Q1

REPORT INFORMATION
  Report Type: Spontaneous
  Country: US (occurrence: US)
  Receive Date: 20180112
  Receipt Date: 20180112
  Transmission Date: 20180509
  Serious: Yes (Hospitalization)
  Sender: FDA-Public Use
  Company Number: None

PATIENT
  Sex: Male

DRUGS (4)
  1. LONSURF [Suspect]
     Active Substance: TIPIRACIL HYDROCHLORIDE\TRIFLURIDINE
     Indication: COLON CANCER
     Route: 048
     Dates: start: 20171018
  2. ALLERGY [Concomitant]
     Active Substance: UNSPECIFIED INGREDIENT
  3. COLACE [Concomitant]
     Active Substance: DOCUSATE SODIUM
  4. ACCUPRIL [Concomitant]
     Active Substance: QUINAPRIL HYDROCHLORIDE

REACTIONS (4)
  - Platelet count decreased [None]
  - Neutropenia [None]
  - Pyrexia [None]
  - Nausea [None]
